FAERS Safety Report 14413623 (Version 1)
Quarter: 2018Q1

REPORT INFORMATION
  Report Type: Spontaneous
  Country: DK (occurrence: DK)
  Receive Date: 20180119
  Receipt Date: 20180119
  Transmission Date: 20180509
  Serious: Yes (Hospitalization)
  Sender: FDA-Public Use
  Company Number: DK-TEVA-2018-DK-846241

PATIENT
  Sex: Female

DRUGS (11)
  1. VITAMIN D [Concomitant]
     Active Substance: CHOLECALCIFEROL
  2. VITAMINS [Concomitant]
     Active Substance: VITAMINS
     Route: 048
  3. ALENDRONAT SANDOZ [Concomitant]
     Active Substance: ALENDRONATE SODIUM
     Indication: OSTEOPOROSIS
     Dosage: 10 MILLIGRAM DAILY;
  4. ALLOPURINOL TEVA [Suspect]
     Active Substance: ALLOPURINOL
     Indication: GOUT
     Dosage: 100 MILLIGRAM DAILY;
     Route: 065
     Dates: start: 2016
  5. EPO [Concomitant]
     Active Substance: ERYTHROPOIETIN
     Dosage: UNKNOWN DOSAGE TWICE AS HIGH AS FOR 5 MONTHS AGO
  6. BISOPROLOL [Concomitant]
     Active Substance: BISOPROLOL
     Dosage: 5 MILLIGRAM DAILY;
     Dates: start: 2014
  7. RAMIPRIL. [Concomitant]
     Active Substance: RAMIPRIL
     Dosage: 7.5 MICROGRAM DAILY; 5 MG TABLETS, 1 1/2 TABLET DAILY
     Route: 048
     Dates: start: 2014
  8. PANTOPRAZOL [Concomitant]
     Active Substance: PANTOPRAZOLE SODIUM
     Indication: HYPERCHLORHYDRIA
     Dosage: 40 MILLIGRAM DAILY; DURATION MANY YEARS
  9. FURIX [Concomitant]
     Active Substance: FUROSEMIDE
     Indication: CARDIAC PACEMAKER INSERTION
     Dosage: 60 MILLIGRAM DAILY; STRENGTH: 40 MG, 1 1/2 TABLET DAILY
     Route: 048
     Dates: start: 2014
  10. VENLAFAXIN [Concomitant]
     Active Substance: VENLAFAXINE HYDROCHLORIDE
     Dosage: 2 CAPSULES DAILY
     Route: 048
     Dates: start: 2007
  11. CALCIUM [Concomitant]
     Active Substance: CALCIUM

REACTIONS (5)
  - Pruritus generalised [Recovering/Resolving]
  - Rash [Recovering/Resolving]
  - Blood iron decreased [Unknown]
  - Dyspnoea [Unknown]
  - Haemoglobin decreased [Unknown]

NARRATIVE: CASE EVENT DATE: 2016
